FAERS Safety Report 8490437-6 (Version None)
Quarter: 2012Q3

REPORT INFORMATION
  Report Type: 
  Country: None (occurrence: None)
  Receive Date: 20120705
  Receipt Date: 20120626
  Transmission Date: 20120928
  Serious: Yes (Other)
  Sender: FDA-Public Use
  Company Number: BR-SANOFI-AVENTIS-2012SA045799

PATIENT
  Age: 44 Year
  Sex: Female
  Weight: 64 kg

DRUGS (6)
  1. HUMALOG [Concomitant]
     Dates: start: 20020101
  2. LANTUS [Suspect]
     Dosage: IN MORNING IN FASTING
     Route: 065
     Dates: start: 20020101
  3. METFORMIN HCL [Concomitant]
     Dates: start: 20020101
  4. INSULIN PEN NOS [Concomitant]
     Indication: DEVICE THERAPY
  5. ASPIRIN [Concomitant]
     Dates: start: 19980101
  6. CIPROFIBRATE [Concomitant]

REACTIONS (7)
  - BLINDNESS [None]
  - BLOOD GLUCOSE FLUCTUATION [None]
  - CATARACT [None]
  - FALL [None]
  - RETINAL DETACHMENT [None]
  - NEUROPATHY PERIPHERAL [None]
  - LIMB INJURY [None]
